FAERS Safety Report 6446254-1 (Version None)
Quarter: 2009Q4

REPORT INFORMATION
  Report Type: 
  Country: None (occurrence: None)
  Receive Date: 20091119
  Receipt Date: 20091113
  Transmission Date: 20100525
  Serious: Yes (Death)
  Sender: FDA-Public Use
  Company Number: US-CELGENEUS-163-21880-09090246

PATIENT
  Sex: Female

DRUGS (3)
  1. REVLIMID [Suspect]
     Indication: MULTIPLE MYELOMA
     Route: 048
     Dates: start: 20090701, end: 20090829
  2. FRAGMIN [Concomitant]
     Indication: DRUG USE FOR UNKNOWN INDICATION
     Dosage: 5,000 UNIT
     Route: 065
     Dates: start: 20090625, end: 20090101
  3. FRAGMIN [Concomitant]
     Dosage: 15,000 UNIT
     Route: 065
     Dates: start: 20090825, end: 20090101

REACTIONS (1)
  - PULMONARY EMBOLISM [None]
